FAERS Safety Report 25789504 (Version 2)
Quarter: 2025Q3

REPORT INFORMATION
  Report Type: Spontaneous
  Country: US (occurrence: US)
  Receive Date: 20250911
  Receipt Date: 20250915
  Transmission Date: 20251021
  Serious: No
  Sender: ABBVIE
  Company Number: US-ABBVIE-6452586

PATIENT
  Age: 28 Year
  Sex: Female

DRUGS (1)
  1. LILETTA [Suspect]
     Active Substance: LEVONORGESTREL
     Indication: Product used for unknown indication
     Route: 015
     Dates: start: 20250903, end: 20250903

REACTIONS (3)
  - Uterine cervix stenosis [Unknown]
  - Procedural pain [Unknown]
  - Device expulsion [Unknown]

NARRATIVE: CASE EVENT DATE: 20250903
